FAERS Safety Report 5393352-X (Version None)
Quarter: 2007Q3

REPORT INFORMATION
  Report Type: 
  Country: None (occurrence: None)
  Receive Date: 20070723
  Receipt Date: 20070716
  Transmission Date: 20080115
  Serious: Yes (Other)
  Sender: FDA-Public Use
  Company Number: PHNU2007DE01150

PATIENT
  Age: 75 Year
  Sex: Female
  Weight: 72 kg

DRUGS (10)
  1. AREDIA [Suspect]
     Indication: PLASMACYTOMA
     Dosage: 90 MG EVERY 6 WEEKS
     Route: 042
  2. AREDIA [Suspect]
     Dosage: 30 MG, QMO
     Route: 042
  3. DIALYSIS [Concomitant]
     Route: 065
  4. PRAVASTATIN [Concomitant]
     Dosage: 20 MG, QD
     Route: 065
  5. PREDNISONE [Concomitant]
     Dosage: 5 MG, QD
     Route: 065
  6. ASPIRIN [Concomitant]
     Dosage: 300 MG, QD
     Route: 065
  7. TORSEMIDE [Concomitant]
     Dosage: 100 MG, QD
     Route: 065
  8. PHOS-EX [Concomitant]
     Indication: DIALYSIS
     Route: 065
  9. ERYPO [Concomitant]
     Indication: DIALYSIS
     Route: 065
  10. FERRLECIT                               /GFR/ [Concomitant]
     Indication: DIALYSIS
     Route: 065

REACTIONS (8)
  - BIOPSY SITE UNSPECIFIED ABNORMAL [None]
  - DENTAL TREATMENT [None]
  - INFLAMMATION OF WOUND [None]
  - NEUROLYSIS SURGICAL [None]
  - OSTEOMYELITIS [None]
  - OSTEONECROSIS [None]
  - SEQUESTRECTOMY [None]
  - TOOTH EXTRACTION [None]
